FAERS Safety Report 9631702 (Version 1)
Quarter: 2013Q4

REPORT INFORMATION
  Report Type: Spontaneous
  Country: JP (occurrence: JP)
  Receive Date: 20131018
  Receipt Date: 20131018
  Transmission Date: 20140711
  Serious: Yes (Other)
  Sender: FDA-Public Use
  Company Number: JP-BAYER-2013-123308

PATIENT
  Age: 41 Year
  Sex: Female

DRUGS (1)
  1. STIVARGA [Suspect]
     Dosage: 160 MG, QD
     Route: 048
     Dates: start: 201309, end: 2013

REACTIONS (2)
  - Depressed level of consciousness [Recovered/Resolved]
  - Palmar-plantar erythrodysaesthesia syndrome [Recovered/Resolved]
